FAERS Safety Report 21562398 (Version 1)
Quarter: 2022Q4

REPORT INFORMATION
  Report Type: Spontaneous
  Country: US (occurrence: US)
  Receive Date: 20221107
  Receipt Date: 20221107
  Transmission Date: 20230112
  Serious: No
  Sender: FDA-Public Use
  Company Number: US-LEO Pharma-346523

PATIENT
  Sex: Male

DRUGS (1)
  1. ADBRY [Suspect]
     Active Substance: TRALOKINUMAB-LDRM
     Indication: Rash
     Dates: start: 20220705

REACTIONS (4)
  - Product use in unapproved indication [Unknown]
  - Lip swelling [Unknown]
  - Off label use [Unknown]
  - Urticaria [Unknown]
